FAERS Safety Report 5735841-1 (Version None)
Quarter: 2008Q2

REPORT INFORMATION
  Report Type: 
  Country: None (occurrence: None)
  Receive Date: 20080509
  Receipt Date: 20080428
  Transmission Date: 20081010
  Serious: Yes (Other)
  Sender: FDA-Public Use
  Company Number: 2008SP008269

PATIENT
  Age: 56 Year
  Sex: Female

DRUGS (2)
  1. CLARITIN [Suspect]
     Indication: MIDDLE EAR EFFUSION
     Dosage: 1 DF; QD; PO
     Route: 048
     Dates: start: 20080101
  2. ZOCOR [Concomitant]

REACTIONS (1)
  - HALLUCINATION [None]
